FAERS Safety Report 7457018-4 (Version None)
Quarter: 2011Q2

REPORT INFORMATION
  Report Type: 
  Country: None (occurrence: None)
  Receive Date: 20110504
  Receipt Date: 20110419
  Transmission Date: 20111010
  Serious: Yes (Other)
  Sender: FDA-Public Use
  Company Number: US-JNJFOC-20110411237

PATIENT
  Age: 51 Year
  Sex: Male

DRUGS (2)
  1. ULTRAM [Suspect]
     Indication: PRODUCT USED FOR UNKNOWN INDICATION
     Route: 065
  2. ANTICONVULSANTS, NOS [Suspect]
     Indication: PRODUCT USED FOR UNKNOWN INDICATION
     Route: 065

REACTIONS (7)
  - RESPIRATORY DEPRESSION [None]
  - MULTIPLE DRUG OVERDOSE [None]
  - LETHARGY [None]
  - SUBSTANCE ABUSE [None]
  - DEPRESSED LEVEL OF CONSCIOUSNESS [None]
  - TOXICITY TO VARIOUS AGENTS [None]
  - CONVULSION [None]
